FAERS Safety Report 24978796 (Version 1)
Quarter: 2025Q1

REPORT INFORMATION
  Report Type: Spontaneous
  Country: FR (occurrence: FR)
  Receive Date: 20250218
  Receipt Date: 20250218
  Transmission Date: 20250409
  Serious: Yes (Other)
  Sender: STALLERGENES
  Company Number: FR-STALCOR-2025-AER-00445

PATIENT
  Age: 14 Year

DRUGS (1)
  1. PALFORZIA [Suspect]
     Active Substance: PEANUT
     Indication: Product used for unknown indication
     Route: 048

REACTIONS (3)
  - Anaphylactic reaction [Recovering/Resolving]
  - Angioedema [Recovering/Resolving]
  - Product use in unapproved therapeutic environment [Recovering/Resolving]

NARRATIVE: CASE EVENT DATE: 20250203
